FAERS Safety Report 9663785 (Version 1)
Quarter: 2013Q4

REPORT INFORMATION
  Report Type: Spontaneous
  Country: US (occurrence: US)
  Receive Date: 20131101
  Receipt Date: 20131101
  Transmission Date: 20140711
  Serious: No
  Sender: FDA-Public Use
  Company Number: US-BAYER-2013-129028

PATIENT
  Sex: Male

DRUGS (2)
  1. CIPRO [Suspect]
     Indication: IRRITABLE BOWEL SYNDROME
     Dosage: 1/4 TABLET BID
  2. CIPRO [Suspect]
     Indication: CROHN^S DISEASE

REACTIONS (1)
  - Product taste abnormal [None]
